FAERS Safety Report 9069008 (Version 1)
Quarter: 2013Q1

REPORT INFORMATION
  Report Type: Spontaneous
  Country: US (occurrence: US)
  Receive Date: 20130128
  Receipt Date: 20130128
  Transmission Date: 20140127
  Serious: No
  Sender: FDA-Public Use
  Company Number: PHHY2012US115189

PATIENT
  Sex: Female

DRUGS (7)
  1. TASIGNA [Suspect]
     Indication: CHRONIC MYELOID LEUKAEMIA
     Dosage: 200 MG,
     Route: 048
  2. CYMBALTA [Concomitant]
  3. FENTANYL [Concomitant]
  4. SYNTHROID [Concomitant]
  5. LEXAPRO [Concomitant]
  6. RAMIPRIL [Concomitant]
  7. CLONAZEPAM [Concomitant]

REACTIONS (20)
  - Lymphoedema [Unknown]
  - Glossodynia [Unknown]
  - Fluid retention [Unknown]
  - Nausea [Unknown]
  - Fatigue [Unknown]
  - Local swelling [Unknown]
  - Back pain [Unknown]
  - Constipation [Unknown]
  - Pruritus [Unknown]
  - Dizziness [Unknown]
  - Muscle spasms [Unknown]
  - Asthenia [Unknown]
  - Pyrexia [Unknown]
  - Headache [Unknown]
  - Alopecia [Unknown]
  - Blood pressure increased [Unknown]
  - Blood urine present [Unknown]
  - Contusion [Unknown]
  - Dyspnoea [Unknown]
  - Oesophageal pain [Unknown]
